FAERS Safety Report 7394113-2 (Version None)
Quarter: 2011Q1

REPORT INFORMATION
  Report Type: 
  Country: None (occurrence: None)
  Receive Date: 20110325
  Receipt Date: 20110315
  Transmission Date: 20110831
  Serious: Yes (Other)
  Sender: FDA-Public Use
  Company Number: 1000016622

PATIENT
  Age: 58 Year
  Sex: Female
  Weight: 122.4 kg

DRUGS (11)
  1. FLOVENT HFA (FLUTICASONE PROPIONATE) (110 MICROGRAM, INHALANT) (FLUTIC [Concomitant]
  2. CALTRATE D (CALCIUM, VITAMIN D, CLACIUM CARBONATE) (TABLETS) (CALCIUM, [Concomitant]
  3. CYMBALTA (DULOXETINE HYDROCHLORIDE) (DULOXETINE HYDROCHLORIDE) [Concomitant]
  4. IBUPROFEN (IBUPROFEN) (TABLETS) (IBUPROFEN) [Concomitant]
  5. ALLEGRA (FEXOFENADINE) (180 MILLIGRAM, TABLETS) (FEXOFENADINE) [Concomitant]
  6. IMITREX (SUMATRIPTAN) (20 MILLIGRAM, NASAL DROPS (INCLUDING NASAL SPRA [Concomitant]
  7. FISH OIL (FISH OIL) (CAPSULES) (FISH OIL) [Concomitant]
  8. ZOLPIDEM (ZOLPIDEM) (10 MILLIGRAM, TABLETS) (ZOLPIDEM) [Concomitant]
  9. GABAPENTIN (GABAPENTIN) (GABAPENTIN) [Concomitant]
  10. ALBUTEROL (ALBUTEROL) (INHALANT) (ALBUTEROL) [Concomitant]
  11. SAVELLA [Suspect]
     Indication: FIBROMYALGIA
     Dosage: 50 MG BID (50 MG, 2 IN 1 D), ORAL
     Route: 048
     Dates: start: 20100424, end: 20100527

REACTIONS (14)
  - VENTRICULAR HYPERTROPHY [None]
  - NECK PAIN [None]
  - HYPERTENSION [None]
  - ANGER [None]
  - ABNORMAL DREAMS [None]
  - NAUSEA [None]
  - HEART RATE INCREASED [None]
  - HEADACHE [None]
  - CRYING [None]
  - DECREASED APPETITE [None]
  - DYSPNOEA [None]
  - DIASTOLIC DYSFUNCTION [None]
  - MUSCULOSKELETAL PAIN [None]
  - FATIGUE [None]
